FAERS Safety Report 9007352 (Version 1)
Quarter: 2013Q1

REPORT INFORMATION
  Report Type: Spontaneous
  Country: US (occurrence: US)
  Receive Date: 20130110
  Receipt Date: 20130110
  Transmission Date: 20140127
  Serious: Yes (Other)
  Sender: FDA-Public Use
  Company Number: US-009507513-1301USA002506

PATIENT
  Age: 60 Year
  Sex: Female

DRUGS (4)
  1. SINGULAIR [Suspect]
     Indication: OROPHARYNGEAL DISCOMFORT
     Dosage: 5 MG, 1/D PO
     Route: 048
  2. PREDNISOLONE [Suspect]
     Indication: COUGH
     Dosage: 3 MG, D PO
     Route: 048
  3. PREDNISOLONE [Suspect]
     Dosage: 5  MG, D PO,
     Route: 048
  4. LEVOCETIRIZINE [Suspect]
     Dosage: 5 MG, 1/D PO
     Route: 048

REACTIONS (4)
  - Pyrexia [Unknown]
  - Dyspnoea [Unknown]
  - Dysphonia [Unknown]
  - Angioedema [Unknown]
